FAERS Safety Report 21272014 (Version 1)
Quarter: 2022Q3

REPORT INFORMATION
  Report Type: Spontaneous
  Country: GB (occurrence: GB)
  Receive Date: 20220830
  Receipt Date: 20220830
  Transmission Date: 20221027
  Serious: Yes (Other)
  Sender: FDA-Public Use
  Company Number: GB-SA-SAC20220829000745

PATIENT
  Age: 74 Year
  Sex: Male

DRUGS (1)
  1. LIBTAYO [Suspect]
     Active Substance: CEMIPLIMAB-RWLC
     Indication: Product used for unknown indication
     Dosage: UNK
     Route: 065
     Dates: start: 202006

REACTIONS (4)
  - Metastases to lung [Unknown]
  - Neoplasm recurrence [Unknown]
  - Cardiac disorder [Unknown]
  - Diarrhoea [Unknown]
